FAERS Safety Report 12073559 (Version 1)
Quarter: 2016Q1

REPORT INFORMATION
  Report Type: Spontaneous
  Country: US (occurrence: US)
  Receive Date: 20160212
  Receipt Date: 20160212
  Transmission Date: 20160526
  Serious: Yes (Other)
  Sender: FDA-Public Use
  Company Number: US-JNJFOC-20160209025

PATIENT
  Sex: Male

DRUGS (14)
  1. HYDROCORTISONE. [Concomitant]
     Active Substance: HYDROCORTISONE
     Dosage: 1 MORNING AND 1 EVENING
     Route: 065
  2. RISPERDAL [Suspect]
     Active Substance: RISPERIDONE
     Indication: PRODUCT USED FOR UNKNOWN INDICATION
     Route: 065
  3. KETOCONAZOLE. [Concomitant]
     Active Substance: KETOCONAZOLE
     Dosage: 1 MORNING AND 1 EVENING
     Route: 065
  4. METFORMIN HCL [Concomitant]
     Active Substance: METFORMIN HYDROCHLORIDE
     Dosage: 1 EVENING
     Route: 065
  5. SUCRALFATE. [Concomitant]
     Active Substance: SUCRALFATE
     Dosage: 1 MORNING AND 1 EVENING
     Route: 065
  6. SIMVASTATIN. [Concomitant]
     Active Substance: SIMVASTATIN
     Route: 065
  7. GABAPENTIN. [Concomitant]
     Active Substance: GABAPENTIN
     Dosage: 1 MORNING AND 1 NOON
     Route: 065
  8. BENZACLIN [Concomitant]
     Active Substance: BENZOYL PEROXIDE\CLINDAMYCIN PHOSPHATE
     Dosage: 1%*/5%, 1 IN MORNING AND 1 EVENING
     Route: 065
  9. DOCQLACE [Concomitant]
     Active Substance: DOCUSATE SODIUM
     Dosage: 1 MORNING AND 1 EVENING
     Route: 065
  10. POLYETHYLENE GLYCOL 3350. [Concomitant]
     Active Substance: POLYETHYLENE GLYCOL 3350
     Dosage: AS NEEDED
     Route: 065
  11. CETIRIZINE HYDROCHLORIDE. [Concomitant]
     Active Substance: CETIRIZINE HYDROCHLORIDE
     Dosage: MORNING
     Route: 065
  12. CLOZAPINE. [Concomitant]
     Active Substance: CLOZAPINE
     Route: 065
  13. ATENOLOL. [Concomitant]
     Active Substance: ATENOLOL
     Dosage: 1 AT NIGHT
     Route: 065
  14. OMEPRAZOLE. [Concomitant]
     Active Substance: OMEPRAZOLE
     Dosage: 1 MORNING AND 1 EVENING
     Route: 065

REACTIONS (12)
  - Impulsive behaviour [Unknown]
  - Depression [Unknown]
  - Fear [Unknown]
  - Tremor [Unknown]
  - Sluggishness [Unknown]
  - Suicidal ideation [Unknown]
  - Seizure [Unknown]
  - Blood glucose increased [Unknown]
  - Abnormal behaviour [Unknown]
  - Hallucination [Unknown]
  - Fatigue [Unknown]
  - Thanatophobia [Unknown]
